FAERS Safety Report 11622234 (Version 1)
Quarter: 2015Q4

REPORT INFORMATION
  Report Type: Spontaneous
  Country: US (occurrence: None)
  Receive Date: 20151008
  Receipt Date: 20151008
  Transmission Date: 20160304
  Serious: Yes (Hospitalization)
  Sender: FDA-Public Use
  Company Number: US-2015-2783

PATIENT
  Age: 6 Month
  Sex: Male
  Weight: 6.8 kg

DRUGS (1)
  1. HEMANGEOL [Suspect]
     Active Substance: PROPRANOLOL HYDROCHLORIDE
     Indication: HAEMANGIOMA
     Route: 048
     Dates: start: 201503

REACTIONS (8)
  - Hypoglycaemia [None]
  - Cold sweat [None]
  - Cyanosis [None]
  - Marcus Gunn syndrome [None]
  - Asthenopia [None]
  - Cough [None]
  - Pallor [None]
  - Unresponsive to stimuli [None]

NARRATIVE: CASE EVENT DATE: 201505
